FAERS Safety Report 8947729 (Version 1)
Quarter: 2012Q4

REPORT INFORMATION
  Report Type: Spontaneous
  Country: JP (occurrence: None)
  Receive Date: 20121127
  Receipt Date: 20121127
  Transmission Date: 20130627
  Serious: Yes (Other)
  Sender: FDA-Public Use
  Company Number: 2012P1065612

PATIENT
  Age: 2 Year
  Sex: Male

DRUGS (1)
  1. AMOXICILLIN [Suspect]
     Indication: COMMON COLD

REACTIONS (5)
  - Acute generalised exanthematous pustulosis [None]
  - Pyrexia [None]
  - Erythema [None]
  - Pustular psoriasis [None]
  - Disease recurrence [None]
